FAERS Safety Report 8348764-9 (Version None)
Quarter: 2012Q2

REPORT INFORMATION
  Report Type: 
  Country: None (occurrence: None)
  Receive Date: 20120508
  Receipt Date: 20120418
  Transmission Date: 20120825
  Serious: Yes (Death)
  Sender: FDA-Public Use
  Company Number: 2012-195

PATIENT
  Age: 74 Year
  Sex: Male

DRUGS (16)
  1. SENNA LAXATIVE (SENNOSIDE A+B) [Concomitant]
  2. LORAZEPAM INTENSOL (LORAZEPAM) [Concomitant]
  3. HYDROCODONE/APAP (HYDROCODONE BITARTRATE, PARACETAMOL) [Concomitant]
  4. PROCHLORPERAZINE MALEATE [Concomitant]
  5. DEXAMETHASONE [Concomitant]
  6. SERTRALINE HCL (SERTRALINE HYDROCHLORIDE) [Concomitant]
  7. ALBUTEROL SULFATE [Concomitant]
  8. TRANSDERM SCOP [Concomitant]
  9. FAZACLO ODT [Suspect]
     Dosage: 350-700 MG QD, ORAL
     Route: 048
     Dates: start: 20040930, end: 20120317
  10. MORPHINE SULFATE INJ [Concomitant]
  11. LEVOTHYROXINE SODIUM [Concomitant]
  12. MUCINEX [Concomitant]
  13. ATROPINE OPHTHALMIC (ATROPINE SULFATE) [Concomitant]
  14. SULFAMETHOXAZOLE AND TRIMETHOPRIM [Concomitant]
  15. FUROSEMIDE [Concomitant]
  16. FERREX (POLYSACCHARIDE-IRON COMPLEX) [Concomitant]

REACTIONS (1)
  - MYOCARDIAL INFARCTION [None]
